FAERS Safety Report 4575720-9 (Version None)
Quarter: 2005Q1

REPORT INFORMATION
  Report Type: 
  Country: None (occurrence: None)
  Receive Date: 20050209
  Receipt Date: 20050128
  Transmission Date: 20050727
  Serious: Yes (Death)
  Sender: FDA-Public Use
  Company Number: US-JNJFOC-20041205869

PATIENT
  Sex: Male
  Weight: 84.5 kg

DRUGS (13)
  1. SPORANOX [Suspect]
     Indication: DRUG USE FOR UNKNOWN INDICATION
     Route: 049
  2. FLORINEF [Concomitant]
  3. CORTEF [Concomitant]
     Dosage: THREE IN AM AND ONE AT NIGHT
  4. ASPIRIN [Concomitant]
  5. MULTIVITAMIN [Concomitant]
  6. MULTIVITAMIN [Concomitant]
  7. MULTIVITAMIN [Concomitant]
  8. MULTIVITAMIN [Concomitant]
  9. MULTIVITAMIN [Concomitant]
  10. MULTIVITAMIN [Concomitant]
  11. MULTIVITAMIN [Concomitant]
  12. MULTIVITAMIN [Concomitant]
  13. ALBUTEROL [Concomitant]

REACTIONS (10)
  - AORTIC ANEURYSM RUPTURE [None]
  - CARDIO-RESPIRATORY ARREST [None]
  - GENERAL PHYSICAL HEALTH DETERIORATION [None]
  - HYPERGLYCAEMIA [None]
  - HYPERKALAEMIA [None]
  - HYPOTENSION [None]
  - PNEUMONIA [None]
  - REFUSAL OF TREATMENT BY PATIENT [None]
  - RENAL FAILURE [None]
  - UPPER GASTROINTESTINAL HAEMORRHAGE [None]
